FAERS Safety Report 7944450-5 (Version None)
Quarter: 2011Q4

REPORT INFORMATION
  Report Type: 
  Country: None (occurrence: None)
  Receive Date: 20111129
  Receipt Date: 20111121
  Transmission Date: 20120403
  Serious: Yes (Hospitalization, Other)
  Sender: FDA-Public Use
  Company Number: CN-PAR PHARMACEUTICAL, INC-2011SCPR003429

PATIENT

DRUGS (2)
  1. HYDROXYUREA [Suspect]
     Indication: POLYCYTHAEMIA VERA
     Dosage: 1 +/-0.5 G/ DAY
     Route: 065
  2. INTERFERON [Suspect]
     Indication: PRODUCT USED FOR UNKNOWN INDICATION
     Dosage: UNK, UNKNOWN
     Route: 065
     Dates: start: 19900101

REACTIONS (1)
  - ANTI-NEUTROPHIL CYTOPLASMIC ANTIBODY POSITIVE VASCULITIS [None]
